FAERS Safety Report 6982138 (Version 9)
Quarter: 2016Q1

REPORT INFORMATION
  Report Type: Report from Study
  Country: JP (occurrence: JP)
  Receive Date: 20090430
  Receipt Date: 20160314
  Transmission Date: 20160526
  Serious: Yes (Hospitalization, Other)
  Sender: FDA-Public Use
  Company Number: PHHY2009JP09961

PATIENT
  Age: 59 Year
  Sex: Female
  Weight: 58 kg

DRUGS (26)
  1. ICL670A [Suspect]
     Active Substance: DEFERASIROX
     Dosage: 500 MG, QD
     Route: 048
     Dates: start: 20091211, end: 20091225
  2. PREDONINE [Concomitant]
     Active Substance: PREDNISOLONE\PREDNISOLONE ACETATE\PREDNISOLONE SODIUM SUCCINATE
     Dosage: 5 MG
     Route: 048
     Dates: start: 20090327
  3. PREDONINE [Concomitant]
     Active Substance: PREDNISOLONE\PREDNISOLONE ACETATE\PREDNISOLONE SODIUM SUCCINATE
     Dosage: 10 MG, UNK
     Route: 048
     Dates: end: 20091120
  4. ICL670A [Suspect]
     Active Substance: DEFERASIROX
     Dosage: 500 MG, QD
     Route: 048
     Dates: start: 20090626, end: 20090917
  5. MUCOSTA [Concomitant]
     Active Substance: REBAMIPIDE
     Indication: PROPHYLAXIS
     Dosage: 300 MG, UNK
     Route: 048
     Dates: start: 20080827
  6. MIYA-BM [Concomitant]
     Active Substance: CLOSTRIDIUM BUTYRICUM SPORES STRAIN M-55
     Indication: PRODUCT USED FOR UNKNOWN INDICATION
     Dosage: 3 G, UNK
     Route: 048
     Dates: start: 20080411
  7. RED BLOOD CELLS, CONCENTRATED [Concomitant]
     Active Substance: HUMAN RED BLOOD CELL
     Dosage: 2 U, QW
     Route: 065
     Dates: start: 20090116, end: 20090130
  8. ICL670A [Suspect]
     Active Substance: DEFERASIROX
     Dosage: 500 MG, QD
     Route: 048
     Dates: start: 20100206, end: 20100723
  9. NEORAL [Suspect]
     Active Substance: CYCLOSPORINE
     Dosage: 110 MG, UNK
     Route: 048
     Dates: start: 20090214
  10. PREDONINE [Concomitant]
     Active Substance: PREDNISOLONE\PREDNISOLONE ACETATE\PREDNISOLONE SODIUM SUCCINATE
     Indication: PRODUCT USED FOR UNKNOWN INDICATION
     Dosage: 14 MG
     Route: 048
     Dates: start: 20080822
  11. ICL670A [Suspect]
     Active Substance: DEFERASIROX
     Dosage: 1000 MG, QD
     Route: 048
     Dates: start: 20100123, end: 20100205
  12. STARSIS [Concomitant]
     Active Substance: NATEGLINIDE
     Indication: PRODUCT USED FOR UNKNOWN INDICATION
     Dosage: 180 MG, UNK
     Route: 048
     Dates: start: 20080731
  13. RED BLOOD CELLS, CONCENTRATED [Concomitant]
     Active Substance: HUMAN RED BLOOD CELL
     Dosage: 2 U, QW2
     Route: 048
     Dates: start: 20090130, end: 20090130
  14. NEORAL [Suspect]
     Active Substance: CYCLOSPORINE
     Dosage: 65 MG, UNK
     Route: 048
     Dates: start: 20081002, end: 20081007
  15. ZOVIRAX [Concomitant]
     Active Substance: ACYCLOVIR
     Dosage: 200 MG, UNK
     Route: 048
     Dates: start: 20090327
  16. RED BLOOD CELLS, CONCENTRATED [Concomitant]
     Active Substance: HUMAN RED BLOOD CELL
     Indication: PRODUCT USED FOR UNKNOWN INDICATION
     Dosage: 2 U, QW
     Route: 065
     Dates: start: 20080909, end: 20081007
  17. ICL670A [Suspect]
     Active Substance: DEFERASIROX
     Indication: ACUTE MYELOID LEUKAEMIA
     Dosage: 500 MG, QD
     Route: 048
     Dates: start: 20080827, end: 20080901
  18. NEORAL [Suspect]
     Active Substance: CYCLOSPORINE
     Indication: ACUTE MYELOID LEUKAEMIA
     Dosage: 110 MG, UNK
     Route: 048
     Dates: start: 20080826, end: 20081001
  19. ZOVIRAX [Concomitant]
     Active Substance: ACYCLOVIR
     Indication: PRODUCT USED FOR UNKNOWN INDICATION
     Dosage: 600 MG, UNK
     Route: 048
     Dates: start: 20080411
  20. ICL670A [Suspect]
     Active Substance: DEFERASIROX
     Dosage: 625 MG, QD
     Route: 048
     Dates: start: 20091226, end: 20100122
  21. NEORAL [Suspect]
     Active Substance: CYCLOSPORINE
     Dosage: 130 MG, UNK
     Route: 048
     Dates: start: 20081008, end: 20090130
  22. NEORAL [Suspect]
     Active Substance: CYCLOSPORINE
     Dosage: 70 MG, UNK
     Route: 048
  23. NEORAL [Suspect]
     Active Substance: CYCLOSPORINE
     Dosage: 10 MG, UNK
     Route: 048
     Dates: end: 20090918
  24. BONAMINE [Concomitant]
     Active Substance: MECLIZINE HYDROCHLORIDE
     Indication: PROPHYLAXIS
     Dosage: 35 MG, UNK
     Route: 048
     Dates: start: 20080104
  25. MYCOSYST [Concomitant]
     Active Substance: FLUCONAZOLE
     Indication: PRODUCT USED FOR UNKNOWN INDICATION
     Dosage: 200 MG, UNK
     Route: 048
     Dates: start: 20080411
  26. RED BLOOD CELLS, CONCENTRATED [Concomitant]
     Active Substance: HUMAN RED BLOOD CELL
     Dosage: 2 U, QW3
     Route: 065
     Dates: start: 20081007, end: 20090116

REACTIONS (12)
  - Asthenia [Recovering/Resolving]
  - Bronchitis [Recovered/Resolved]
  - Pyrexia [Recovering/Resolving]
  - Decreased appetite [Recovered/Resolved]
  - Retinal haemorrhage [Recovering/Resolving]
  - Decreased appetite [Recovered/Resolved]
  - Renal impairment [Recovering/Resolving]
  - Muscular weakness [Recovering/Resolving]
  - Pharyngitis [Recovered/Resolved]
  - Rash pruritic [Recovering/Resolving]
  - Renal impairment [Recovered/Resolved]
  - Liver disorder [Recovering/Resolving]

NARRATIVE: CASE EVENT DATE: 20080829
